FAERS Safety Report 15366326 (Version 1)
Quarter: 2018Q3

REPORT INFORMATION
  Report Type: Spontaneous
  Country: US (occurrence: US)
  Receive Date: 20180831
  Receipt Date: 20180831
  Transmission Date: 20181010
  Serious: No
  Sender: FDA-Public Use
  Company Number: None

PATIENT
  Age: 63 Year
  Sex: Female
  Weight: 86.18 kg

DRUGS (15)
  1. LEVAQUIN [Suspect]
     Active Substance: LEVOFLOXACIN
     Indication: LOWER RESPIRATORY TRACT INFECTION
     Dosage: ?          QUANTITY:1 MG MILLIGRAM(S);OTHER FREQUENCY:DAILY FOR 10 DAYS;?
     Route: 048
     Dates: start: 20180618, end: 20180622
  2. METAFMIN [Concomitant]
  3. CALTRATE [Concomitant]
     Active Substance: CALCIUM CARBONATE
  4. PRO?AIR HFA INHALER [Concomitant]
  5. VITAMIN C [Concomitant]
     Active Substance: ASCORBIC ACID
  6. VITAMIN D3 [Concomitant]
     Active Substance: CHOLECALCIFEROL
  7. FISH OIL [Concomitant]
     Active Substance: FISH OIL
  8. ATENOLOL. [Concomitant]
     Active Substance: ATENOLOL
  9. MAXZIDE [Concomitant]
     Active Substance: HYDROCHLOROTHIAZIDE\TRIAMTERENE
  10. LOTREL [Concomitant]
     Active Substance: AMLODIPINE BESYLATE\BENAZEPRIL HYDROCHLORIDE
  11. PRAVASTATIN. [Concomitant]
     Active Substance: PRAVASTATIN
  12. ASPIRIN. [Concomitant]
     Active Substance: ASPIRIN
  13. GLIPIZIDE. [Concomitant]
     Active Substance: GLIPIZIDE
  14. LORAIADINE [Concomitant]
  15. MONTELUKAST [Concomitant]
     Active Substance: MONTELUKAST SODIUM

REACTIONS (6)
  - Hyperhidrosis [None]
  - Heart rate increased [None]
  - Dizziness [None]
  - Visual impairment [None]
  - Miosis [None]
  - Presyncope [None]

NARRATIVE: CASE EVENT DATE: 20180620
